FAERS Safety Report 25211692 (Version 2)
Quarter: 2025Q3

REPORT INFORMATION
  Report Type: Spontaneous
  Country: US (occurrence: US)
  Receive Date: 20250418
  Receipt Date: 20250916
  Transmission Date: 20251020
  Serious: Yes (Hospitalization, Disabling)
  Sender: MICRO LABS
  Company Number: US-MLMSERVICE-20250401-PI459127-00052-1

PATIENT
  Age: 81 Year
  Sex: Male

DRUGS (1)
  1. AMOXICILLIN [Suspect]
     Active Substance: AMOXICILLIN
     Indication: Antibiotic prophylaxis

REACTIONS (2)
  - Encephalitis [Recovering/Resolving]
  - Meningitis aseptic [Recovering/Resolving]
